FAERS Safety Report 6173547-8 (Version None)
Quarter: 2009Q2

REPORT INFORMATION
  Report Type: 
  Country: None (occurrence: None)
  Receive Date: 20090430
  Receipt Date: 20090423
  Transmission Date: 20091009
  Serious: Yes (Hospitalization)
  Sender: FDA-Public Use
  Company Number: B0571379A

PATIENT
  Sex: Male

DRUGS (6)
  1. AMOXICILLIN TRIHYDRATE [Suspect]
     Indication: ERYSIPELAS
     Dosage: 1G THREE TIMES PER DAY
     Route: 048
     Dates: start: 20090323, end: 20090325
  2. PENICILLIN G [Suspect]
     Indication: ERYSIPELAS
     Dosage: 3IU6 FOUR TIMES PER DAY
     Route: 042
     Dates: start: 20090319, end: 20090323
  3. PAROXETINE HCL [Concomitant]
     Dosage: 1UNIT PER DAY
     Route: 048
  4. COZAAR [Concomitant]
     Dosage: 50MG PER DAY
     Route: 048
  5. PRAVASTATIN [Concomitant]
     Dosage: 20MG PER DAY
     Route: 048
  6. PLAVIX [Concomitant]
     Dosage: 75MG ALTERNATE DAYS
     Route: 048

REACTIONS (3)
  - PRURIGO [None]
  - RASH MACULO-PAPULAR [None]
  - TOXIC SKIN ERUPTION [None]
